FAERS Safety Report 5600123-5 (Version None)
Quarter: 2008Q1

REPORT INFORMATION
  Report Type: 
  Country: None (occurrence: None)
  Receive Date: 20071226
  Receipt Date: 20070712
  Transmission Date: 20080703
  Serious: Yes (Other)
  Sender: FDA-Public Use
  Company Number: 2007-0012670

PATIENT
  Age: 42 Year
  Sex: Male
  Weight: 74.3899 kg

DRUGS (5)
  1. VIREAD [Suspect]
     Indication: HIV INFECTION
     Dosage: 300 MG, 1 IN 1 D, ORAL
     Route: 048
     Dates: start: 20020313, end: 20020323
  2. VIREAD [Suspect]
     Indication: HIV INFECTION
     Dosage: 300 MG, 1 IN 1 D, ORAL
     Route: 048
     Dates: start: 20020510, end: 20060914
  3. VIRAMUNE [Concomitant]
  4. ZIAGEN [Concomitant]
  5. CIALIS [Concomitant]

REACTIONS (1)
  - BLOOD CREATININE INCREASED [None]
